FAERS Safety Report 9713571 (Version 1)
Quarter: 2013Q4

REPORT INFORMATION
  Report Type: Spontaneous
  Country: US (occurrence: US)
  Receive Date: 20131126
  Receipt Date: 20131126
  Transmission Date: 20140711
  Serious: No
  Sender: FDA-Public Use
  Company Number: US-009507513-1311USA010586

PATIENT
  Sex: Female

DRUGS (1)
  1. CLARITIN [Suspect]
     Indication: OCULAR HYPERAEMIA
     Dosage: UNK, UNKNOWN
     Route: 048
     Dates: start: 20131114

REACTIONS (3)
  - Insomnia [Unknown]
  - Fatigue [Unknown]
  - Off label use [Unknown]
